FAERS Safety Report 15123473 (Version 1)
Quarter: 2018Q3

REPORT INFORMATION
  Report Type: Report from Study
  Country: None (occurrence: DE)
  Receive Date: 20180709
  Receipt Date: 20180709
  Transmission Date: 20181010
  Serious: Yes (Hospitalization, Other)
  Sender: FDA-Public Use
  Company Number: DE-ABBVIE-18K-062-2412197-00

PATIENT
  Age: 34 Year
  Sex: Male

DRUGS (2)
  1. HUMIRA [Suspect]
     Active Substance: ADALIMUMAB
     Indication: CROHN^S DISEASE
     Route: 058
     Dates: start: 201701, end: 201803
  2. HUMIRA [Suspect]
     Active Substance: ADALIMUMAB
     Indication: SPONDYLITIS

REACTIONS (3)
  - Condition aggravated [Recovered/Resolved]
  - Gastrointestinal neoplasm [Recovered/Resolved]
  - Gastrointestinal injury [Recovered/Resolved]

NARRATIVE: CASE EVENT DATE: 201801
